FAERS Safety Report 13334340 (Version 1)
Quarter: 2017Q1

REPORT INFORMATION
  Report Type: Spontaneous
  Country: FR (occurrence: FR)
  Receive Date: 20170314
  Receipt Date: 20170314
  Transmission Date: 20170428
  Serious: Yes (Death)
  Sender: FDA-Public Use
  Company Number: FR-JNJFOC-20170311113

PATIENT
  Age: 28 Year
  Sex: Female

DRUGS (14)
  1. NICOPATCH [Concomitant]
     Active Substance: NICOTINE
     Route: 065
  2. TERCIAN [Concomitant]
     Active Substance: CYAMEMAZINE
     Route: 065
  3. THERALENE [Concomitant]
     Active Substance: TRIMEPRAZINE
     Route: 065
  4. DUROGESIC [Suspect]
     Active Substance: FENTANYL
     Indication: PRODUCT USED FOR UNKNOWN INDICATION
     Route: 062
  5. IXPRIM [Concomitant]
     Active Substance: ACETAMINOPHEN\TRAMADOL HYDROCHLORIDE
     Route: 065
  6. LEVOTHYROX [Concomitant]
     Active Substance: LEVOTHYROXINE
     Route: 065
  7. DEROXAT [Concomitant]
     Active Substance: PAROXETINE HYDROCHLORIDE
     Route: 065
  8. PIVALONE [Concomitant]
     Active Substance: TIXOCORTOL PIVALATE
     Route: 065
  9. PREDNISOLONE. [Concomitant]
     Active Substance: PREDNISOLONE
     Route: 065
  10. DAFALGAN [Concomitant]
     Active Substance: ACETAMINOPHEN
     Route: 065
  11. MIANSERINE [Concomitant]
     Active Substance: MIANSERIN HYDROCHLORIDE
     Route: 065
  12. TUSSIDANE [Concomitant]
     Active Substance: DEXTROMETHORPHAN HYDROBROMIDE
     Route: 065
  13. PROPRANOLOL [Concomitant]
     Active Substance: PROPRANOLOL HYDROCHLORIDE
     Route: 065
  14. TRAMADOL. [Suspect]
     Active Substance: TRAMADOL
     Indication: PRODUCT USED FOR UNKNOWN INDICATION
     Route: 065

REACTIONS (3)
  - Toxicity to various agents [Fatal]
  - Cardio-respiratory arrest [Fatal]
  - Drug abuse [Fatal]

NARRATIVE: CASE EVENT DATE: 20161209
